FAERS Safety Report 4565011-4 (Version None)
Quarter: 2005Q1

REPORT INFORMATION
  Report Type: 
  Country: None (occurrence: None)
  Receive Date: 20050131
  Receipt Date: 20050119
  Transmission Date: 20050727
  Serious: Yes (Other)
  Sender: FDA-Public Use
  Company Number: PHBS2005JP01252

PATIENT
  Age: 44 Year
  Sex: Male
  Weight: 89 kg

DRUGS (5)
  1. PGE 1 [Concomitant]
  2. REGITIN [Suspect]
     Dosage: 0.5-2 MG, ONCE/SINGLE
  3. NITROGLYCERIN [Concomitant]
     Dosage: 3 UG/KG/MIN
  4. NICARDIPINE HYDROCHLORIDE [Suspect]
     Dosage: 2.5 UG/KG/MIN
  5. CARDIOVASCULAR DRUGS [Concomitant]

REACTIONS (7)
  - CARDIAC INDEX ABNORMAL [None]
  - LACTIC ACIDOSIS [None]
  - METABOLIC ACIDOSIS [None]
  - OLIGURIA [None]
  - OXYGEN SATURATION ABNORMAL [None]
  - SHOCK [None]
  - VASCULAR RESISTANCE SYSTEMIC DECREASED [None]
